FAERS Safety Report 7328281-5 (Version None)
Quarter: 2011Q1

REPORT INFORMATION
  Report Type: 
  Country: None (occurrence: None)
  Receive Date: 20110224
  Receipt Date: 20110224
  Transmission Date: 20110831
  Serious: No
  Sender: FDA-Public Use
  Company Number: None

PATIENT
  Age: 49 Year
  Sex: Female

DRUGS (1)
  1. VANCOMYCIN [Suspect]
     Dosage: 1 GM DAILY IV PIGGYBACK
     Route: 042
     Dates: start: 20110218, end: 20110218

REACTIONS (2)
  - URTICARIA [None]
  - ERYTHEMA [None]
